FAERS Safety Report 6599183-7 (Version None)
Quarter: 2010Q1

REPORT INFORMATION
  Report Type: 
  Country: None (occurrence: None)
  Receive Date: 20100217
  Receipt Date: 20100127
  Transmission Date: 20100710
  Serious: Yes (Hospitalization, Other)
  Sender: FDA-Public Use
  Company Number: 2009AC000525

PATIENT
  Age: 48 Year
  Sex: Female

DRUGS (23)
  1. DIGOXIN [Suspect]
     Dosage: 0.1125 MG;QD;PO
     Route: 048
  2. DIGOXIN [Suspect]
     Dosage: .25 MG;QD;PO
     Route: 048
     Dates: start: 20010207
  3. DIGOXIN [Suspect]
     Dosage: 0.25 MG;QD;PO
     Route: 048
     Dates: start: 20070201
  4. AVANDIA [Concomitant]
  5. PLAVIX [Concomitant]
  6. ASPIRIN [Concomitant]
  7. ZOLOFT [Concomitant]
  8. DILEX G [Concomitant]
  9. LORAZEPAM [Concomitant]
  10. ADVAIR DISKUS 100/50 [Concomitant]
  11. CEPHADYN [Concomitant]
  12. TRICOR [Concomitant]
  13. NITROGLYCERIN [Concomitant]
  14. ALBUTEROL [Concomitant]
  15. ATROVENT [Concomitant]
  16. GLIPIZIDE [Concomitant]
  17. LIPITOR [Concomitant]
  18. SINGULAIR [Concomitant]
  19. FLOVENT [Concomitant]
  20. THEO-DUR [Concomitant]
  21. AVELOX [Concomitant]
  22. NEXIUM [Concomitant]
  23. BUPROPION HCL [Concomitant]

REACTIONS (18)
  - ABDOMINAL PAIN UPPER [None]
  - ADENOMA BENIGN [None]
  - ANXIETY [None]
  - BALANITIS CANDIDA [None]
  - BLOOD GLUCOSE INCREASED [None]
  - CHRONIC OBSTRUCTIVE PULMONARY DISEASE [None]
  - COLONIC POLYP [None]
  - CONDITION AGGRAVATED [None]
  - DYSPHAGIA [None]
  - HAEMATOCHEZIA [None]
  - HYPOKALAEMIA [None]
  - INJURY [None]
  - NAUSEA [None]
  - OBESITY [None]
  - PAIN [None]
  - UPPER RESPIRATORY TRACT INFECTION [None]
  - VOMITING [None]
  - WEIGHT DECREASED [None]
